FAERS Safety Report 5768807-6 (Version None)
Quarter: 2008Q2

REPORT INFORMATION
  Report Type: 
  Country: None (occurrence: None)
  Receive Date: 20080610
  Receipt Date: 20080527
  Transmission Date: 20081010
  Serious: Yes (Death, Life-Threatening, Hospitalization)
  Sender: FDA-Public Use
  Company Number: S07-FRA-06111-01

PATIENT
  Age: 94 Year
  Sex: Female
  Weight: 50 kg

DRUGS (3)
  1. MEMANTINE HCL [Suspect]
     Indication: DEMENTIA ALZHEIMER'S TYPE
     Dosage: 20 MG QD PO
     Route: 048
     Dates: start: 20070425, end: 20071025
  2. KARDEGIC (ACETYLSALICYLATE LYSINE) [Concomitant]
  3. ZESTORETIC [Concomitant]

REACTIONS (3)
  - HEPATIC FAILURE [None]
  - HEPATOMEGALY [None]
  - JAUNDICE [None]
